FAERS Safety Report 8385194 (Version 4)
Quarter: 2012Q4

REPORT INFORMATION
  Report Type: Report from Study
  Country: DE (occurrence: DE)
  Receive Date: 20120202
  Receipt Date: 20120831
  Transmission Date: 20130627
  Serious: Yes (Life-Threatening, Hospitalization)
  Sender: FDA-Public Use
  Company Number: DE-MPIJNJ-2012-00535

PATIENT

DRUGS (8)
  1. VELCADE [Suspect]
     Indication: MULTIPLE MYELOMA
     Dosage: UNK
     Route: 065
     Dates: start: 20110419, end: 20111122
  2. MELPHALAN [Concomitant]
     Indication: MULTIPLE MYELOMA
     Dosage: UNK
     Dates: start: 20110419, end: 20111122
  3. PREDNISOLONE [Concomitant]
     Indication: MULTIPLE MYELOMA
     Dosage: UNK
     Dates: start: 20110419, end: 20111122
  4. DEXAHEXAL                          /00016010/ [Concomitant]
     Indication: MULTIPLE MYELOMA
     Dosage: 8 mg, UNK
     Dates: start: 20110419, end: 20111122
  5. ERYTHROPOIETIN [Concomitant]
     Dosage: UNK
     Dates: start: 20110503
  6. VOMEX A                            /00019501/ [Concomitant]
     Dosage: UNK
     Dates: start: 20110419
  7. NOVAMINSULFON [Concomitant]
     Dosage: UNK
     Dates: start: 20110620
  8. IBANDRONATE SODIUM [Concomitant]
     Dosage: 2 mg, UNK
     Dates: start: 20120301

REACTIONS (1)
  - Leukopenia [Recovered/Resolved]
